FAERS Safety Report 8002562-4 (Version None)
Quarter: 2011Q4

REPORT INFORMATION
  Report Type: 
  Country: None (occurrence: None)
  Receive Date: 20111222
  Receipt Date: 20111216
  Transmission Date: 20120403
  Serious: Yes (Hospitalization, Other)
  Sender: FDA-Public Use
  Company Number: FI-PFIZER INC-2010165560

PATIENT
  Age: 29 Year
  Sex: Male

DRUGS (8)
  1. REVATIO [Suspect]
     Indication: PULMONARY ARTERIAL HYPERTENSION
     Dosage: 10 MG, 3X/DAY
     Dates: start: 20101121, end: 20101124
  2. FURESIS [Concomitant]
     Dosage: 40 MG 2-3 TIMES DAILY
  3. TRACLEER [Concomitant]
     Dosage: 125 MG, 2X/DAY
  4. APURIN [Concomitant]
     Dosage: 100 MG, 1X/DAY
  5. ALCOHOL [Suspect]
  6. SPIRONOLACTONE [Concomitant]
     Dosage: 50 MG, 2X/DAY
  7. MAREVAN ^ORION^ [Concomitant]
     Dosage: AS PER INSTRUCTIONS
  8. REVATIO [Suspect]

REACTIONS (4)
  - DEPRESSED LEVEL OF CONSCIOUSNESS [None]
  - BLOOD PRESSURE FLUCTUATION [None]
  - MYOCLONIC EPILEPSY [None]
  - CARDIAC ARREST [None]
